FAERS Safety Report 18440975 (Version 1)
Quarter: 2020Q4

REPORT INFORMATION
  Report Type: Spontaneous
  Country: US (occurrence: US)
  Receive Date: 20201029
  Receipt Date: 20201029
  Transmission Date: 20210114
  Serious: Yes (Hospitalization)
  Sender: FDA-Public Use
  Company Number: None

PATIENT
  Age: 51 Year
  Sex: Female

DRUGS (14)
  1. HYDROXYCHLOR [Concomitant]
     Active Substance: HYDROXYCHLOROQUINE
  2. FOLIC ACID. [Concomitant]
     Active Substance: FOLIC ACID
  3. TOPIRAMATE. [Concomitant]
     Active Substance: TOPIRAMATE
  4. AIMOVIG [Concomitant]
     Active Substance: ERENUMAB-AOOE
  5. PILOCARPINE. [Concomitant]
     Active Substance: PILOCARPINE
  6. HYDROCO/APAP [Concomitant]
     Active Substance: ACETAMINOPHEN\HYDROCODONE
  7. OXYCODONE AND ACETAMINOPHEN [Concomitant]
     Active Substance: ACETAMINOPHEN\OXYCODONE HYDROCHLORIDE
  8. UBRELVY [Concomitant]
     Active Substance: UBROGEPANT
  9. PREDNISONE. [Concomitant]
     Active Substance: PREDNISONE
  10. TRIAMCINOLON [Concomitant]
  11. HUMIRA [Suspect]
     Active Substance: ADALIMUMAB
     Indication: ANKYLOSING SPONDYLITIS
     Dosage: ?          OTHER FREQUENCY:EVERY 2 WEEKS;?
     Route: 058
     Dates: start: 20200313
  12. METHOTREXATE. [Concomitant]
     Active Substance: METHOTREXATE
  13. ZOLPIDEM [Concomitant]
     Active Substance: ZOLPIDEM TARTRATE
  14. METHOTREXATE. [Suspect]
     Active Substance: METHOTREXATE

REACTIONS (3)
  - Ankylosing spondylitis [None]
  - Urticaria [None]
  - Drug hypersensitivity [None]
